FAERS Safety Report 19068470 (Version 1)
Quarter: 2021Q1

REPORT INFORMATION
  Report Type: Spontaneous
  Country: US (occurrence: US)
  Receive Date: 20210326
  Receipt Date: 20210326
  Transmission Date: 20210420
  Serious: Yes (Other)
  Sender: FDA-Public Use
  Company Number: None

PATIENT
  Age: 53 Year
  Sex: Male
  Weight: 97.52 kg

DRUGS (9)
  1. DULOXETINE. [Concomitant]
     Active Substance: DULOXETINE
  2. ESZOPICLONE. [Concomitant]
     Active Substance: ESZOPICLONE
  3. VITAMIN D [Concomitant]
     Active Substance: VITAMIN D NOS
  4. VITAMIN B COMPLEX [Concomitant]
     Active Substance: CYANOCOBALAMIN\DEXPANTHENOL\NIACINAMIDE\PYRIDOXINE HYDROCHLORIDE\RIBOFLAVIN 5^-PHOSPHATE SODIUM\THIAMINE HYDROCHLORIDE\VITAMIN B COMPLEX
  5. DAILY MULTI VITAMIN + MINERAL [Concomitant]
  6. ATORVASTATIN [Concomitant]
     Active Substance: ATORVASTATIN
  7. MELATONIN [Concomitant]
     Active Substance: MELATONIN
  8. PROPRANOLOL [Concomitant]
     Active Substance: PROPRANOLOL HYDROCHLORIDE
  9. TKO TRADEMARK DELTA 8 INFUSED NERD ROPES BY TERP NATION [Suspect]
     Active Substance: .DELTA.8-TETRAHYDROCANNABINOL\HERBALS
     Indication: PAIN
     Dosage: STRENGTH: 200MG DELTA 8 THC HEMP?QUANTITY: 1 CANDY ROPE
     Dates: start: 20210323, end: 20210323

REACTIONS (11)
  - Dissociation [None]
  - Adverse drug reaction [None]
  - Time perception altered [None]
  - Hallucination [None]
  - Feeling abnormal [None]
  - Suspected product quality issue [None]
  - Fear [None]
  - Physical product label issue [None]
  - Confusional state [None]
  - Euphoric mood [None]
  - Amnesia [None]

NARRATIVE: CASE EVENT DATE: 20210323
